FAERS Safety Report 7206704-X (Version None)
Quarter: 2011Q1

REPORT INFORMATION
  Report Type: 
  Country: None (occurrence: None)
  Receive Date: 20110103
  Receipt Date: 20101221
  Transmission Date: 20110831
  Serious: No
  Sender: FDA-Public Use
  Company Number: US-PFIZER INC-US-WYE-H17155410

PATIENT
  Sex: Male
  Weight: 113.4 kg

DRUGS (10)
  1. PRISTIQ [Interacting]
     Indication: DEPRESSION
     Dosage: 50.0 MG, 1X/DAY
     Route: 048
     Dates: start: 20100804
  2. ACETYLSALICYLIC ACID [Suspect]
     Dosage: UNKNOWN
     Route: 065
  3. CARDURA [Interacting]
     Dosage: 2.0 MG, 1X/DAY
     Route: 065
  4. NEBIVOLOL [Interacting]
     Dosage: 5 MG, FREQUENCY NOT PROVIDED
     Route: 065
  5. NORVASC [Interacting]
     Dosage: 10.0 MG, 1X/DAY
     Route: 065
  6. HYDROCHLOROTHIAZIDE [Interacting]
     Dosage: 25.0 MG, 1X/DAY
     Route: 065
  7. TOVIAZ [Interacting]
     Indication: BLADDER DISORDER
     Dosage: 8.0 MG, 1X/DAY
     Route: 065
     Dates: start: 20100801
  8. XANAX [Interacting]
     Dosage: 1.0 MG, 1X/DAY
     Route: 065
  9. NORCO [Interacting]
     Indication: PAIN
     Dosage: 10/325 MG, UNK
     Route: 065
  10. MICARDIS [Interacting]
     Dosage: 80 MG, UNK
     Route: 065

REACTIONS (6)
  - DYSPHAGIA [None]
  - VISION BLURRED [None]
  - DRUG INTERACTION [None]
  - DRUG INEFFECTIVE [None]
  - DRY MOUTH [None]
  - URINARY HESITATION [None]
